FAERS Safety Report 12713273 (Version 2)
Quarter: 2016Q4

REPORT INFORMATION
  Report Type: Report from Study
  Country: CO (occurrence: CO)
  Receive Date: 20160902
  Receipt Date: 20161008
  Transmission Date: 20170207
  Serious: Yes (Hospitalization)
  Sender: FDA-Public Use
  Company Number: CO-ASTRAZENECA-2016SE92595

PATIENT
  Age: 24818 Day
  Sex: Male

DRUGS (5)
  1. AZD6140 [Suspect]
     Active Substance: TICAGRELOR
     Indication: CARDIOVASCULAR EVENT PROPHYLAXIS
     Route: 048
     Dates: start: 20150804
  2. ASA [Concomitant]
     Active Substance: ASPIRIN
     Indication: CORONARY ARTERY DISEASE
     Route: 048
  3. IMIPRAMINE [Concomitant]
     Active Substance: IMIPRAMINE
     Indication: URINARY INCONTINENCE
     Route: 048
  4. METFORMIN [Concomitant]
     Active Substance: METFORMIN HYDROCHLORIDE
     Indication: TYPE 2 DIABETES MELLITUS
     Route: 048
  5. NPH INSULIN [Concomitant]
     Active Substance: INSULIN BEEF
     Indication: TYPE 2 DIABETES MELLITUS
     Route: 058

REACTIONS (1)
  - Cardiac failure [Recovered/Resolved]

NARRATIVE: CASE EVENT DATE: 20160817
